FAERS Safety Report 15969185 (Version 2)
Quarter: 2019Q1

REPORT INFORMATION
  Report Type: Spontaneous
  Country: US (occurrence: US)
  Receive Date: 20190215
  Receipt Date: 20190313
  Transmission Date: 20190418
  Serious: Yes (Other)
  Sender: FDA-Public Use
  Company Number: US-ASTRAZENECA-2018SF34927

PATIENT
  Age: 25166 Day
  Sex: Female

DRUGS (10)
  1. PRILOSEC [Suspect]
     Active Substance: OMEPRAZOLE MAGNESIUM
     Dosage: GENERIC
     Route: 048
     Dates: start: 20170917
  2. LORATADINE. [Concomitant]
     Active Substance: LORATADINE
  3. LEVOTHYROXINE. [Concomitant]
     Active Substance: LEVOTHYROXINE
  4. ASPIRIN. [Concomitant]
     Active Substance: ASPIRIN
  5. ROPINIROLE. [Concomitant]
     Active Substance: ROPINIROLE
  6. SIMVASTATIN. [Concomitant]
     Active Substance: SIMVASTATIN
  7. DORZOLAMIDE [Concomitant]
     Active Substance: DORZOLAMIDE
  8. LEVEMIR [Concomitant]
     Active Substance: INSULIN DETEMIR
  9. LEVOTHYROXINE. [Concomitant]
     Active Substance: LEVOTHYROXINE
  10. WARFARIN [Concomitant]
     Active Substance: WARFARIN

REACTIONS (4)
  - Chronic kidney disease [Unknown]
  - Renal injury [Unknown]
  - Renal failure [Unknown]
  - End stage renal disease [Unknown]

NARRATIVE: CASE EVENT DATE: 20171223
